FAERS Safety Report 12825520 (Version 1)
Quarter: 2016Q4

REPORT INFORMATION
  Report Type: Spontaneous
  Country: US (occurrence: US)
  Receive Date: 20161006
  Receipt Date: 20161006
  Transmission Date: 20170207
  Serious: Yes (Other)
  Sender: FDA-Public Use
  Company Number: US-GLAXOSMITHKLINE-US2016145412

PATIENT
  Age: 79 Year
  Sex: Female

DRUGS (2)
  1. VOLTAREN [Suspect]
     Active Substance: DICLOFENAC SODIUM
     Indication: ARTHRALGIA
     Dosage: , USING 3 TO 4 TIMES A DAYUNK
     Route: 061
     Dates: start: 2006
  2. VOLTAREN [Suspect]
     Active Substance: DICLOFENAC SODIUM
     Dosage: UNK, USING 3 TO 4 TIMES A DAY
     Route: 061

REACTIONS (10)
  - Shoulder operation [Unknown]
  - Hypoaesthesia [Unknown]
  - Hand fracture [Unknown]
  - Fall [Unknown]
  - Arthritis [Unknown]
  - Intentional product misuse [Unknown]
  - Inappropriate schedule of drug administration [Unknown]
  - Carpal tunnel syndrome [Unknown]
  - Drug administered at inappropriate site [Unknown]
  - Joint injury [Unknown]

NARRATIVE: CASE EVENT DATE: 2008
